FAERS Safety Report 4458180-8 (Version None)
Quarter: 2004Q3

REPORT INFORMATION
  Report Type: 
  Country: None (occurrence: None)
  Receive Date: 20040923
  Receipt Date: 20040805
  Transmission Date: 20050211
  Serious: Yes (Other)
  Sender: FDA-Public Use
  Company Number: 20040800365

PATIENT
  Age: 13 Year

DRUGS (1)
  1. FAMOTIDINE [Suspect]
     Dates: start: 20040717, end: 20040717

REACTIONS (1)
  - MEDICATION ERROR [None]
